FAERS Safety Report 9734341 (Version 1)
Quarter: 2013Q4

REPORT INFORMATION
  Report Type: Spontaneous
  Country: FR (occurrence: FR)
  Receive Date: 20131206
  Receipt Date: 20131206
  Transmission Date: 20140711
  Serious: Yes (Other)
  Sender: FDA-Public Use
  Company Number: FR-ROCHE-1314644

PATIENT
  Age: 53 Year
  Sex: Male

DRUGS (11)
  1. LUCENTIS [Suspect]
     Indication: MACULAR OEDEMA
     Route: 050
     Dates: start: 20130702
  2. LUCENTIS [Suspect]
     Route: 050
     Dates: start: 20130730
  3. LUCENTIS [Suspect]
     Route: 050
     Dates: start: 20130827
  4. OROCAL [Concomitant]
  5. FOSRENOL [Concomitant]
  6. APROVEL [Concomitant]
  7. UVEDOSE [Concomitant]
  8. ARANESP [Concomitant]
  9. FERINJECT [Concomitant]
  10. CALCIUM FOLINATE [Concomitant]
  11. ZOLPIDEM [Concomitant]

REACTIONS (1)
  - Antibody test positive [Not Recovered/Not Resolved]
